FAERS Safety Report 11281016 (Version 1)
Quarter: 2015Q3

REPORT INFORMATION
  Report Type: Spontaneous
  Country: US (occurrence: US)
  Receive Date: 20150717
  Receipt Date: 20150717
  Transmission Date: 20151125
  Serious: Yes (Death)
  Sender: FDA-Public Use
  Company Number: US-FRESENIUS KABI-FK201403970

PATIENT
  Age: 19 Year
  Sex: Male

DRUGS (3)
  1. NOREPINEPHRINE [Concomitant]
     Active Substance: NOREPINEPHRINE\NOREPINEPHRINE BITARTRATE
     Indication: CSF PRESSURE
     Route: 041
  2. KETAMINE [Concomitant]
     Active Substance: KETAMINE
     Indication: CSF PRESSURE
     Route: 041
  3. PROPOFOL (MANUFACTURER UNKNOWN) [Suspect]
     Active Substance: PROPOFOL
     Indication: SEDATION
     Route: 042

REACTIONS (1)
  - Propofol infusion syndrome [Fatal]
